FAERS Safety Report 10712631 (Version 4)
Quarter: 2015Q2

REPORT INFORMATION
  Report Type: Report from Study
  Country: US (occurrence: US)
  Receive Date: 20150115
  Receipt Date: 20150513
  Transmission Date: 20150821
  Serious: Yes (Hospitalization)
  Sender: FDA-Public Use
  Company Number: US-BIOGENIDEC-2015BI000976

PATIENT
  Age: 46 Year
  Sex: Female

DRUGS (1)
  1. TECFIDERA [Suspect]
     Active Substance: DIMETHYL FUMARATE
     Indication: MULTIPLE SCLEROSIS
     Route: 048
     Dates: start: 20130916, end: 20141029

REACTIONS (8)
  - Adverse event [Recovered/Resolved]
  - Cystitis [Recovered/Resolved]
  - Multiple sclerosis [Recovered/Resolved]
  - Flushing [Recovered/Resolved]
  - Breast cancer [Recovered/Resolved]
  - Multiple sclerosis relapse [Recovered/Resolved]
  - Infection [Unknown]
  - Pancreatitis [Recovered/Resolved]

NARRATIVE: CASE EVENT DATE: 201309
